FAERS Safety Report 14657961 (Version 1)
Quarter: 2018Q1

REPORT INFORMATION
  Report Type: Spontaneous
  Country: GB (occurrence: GB)
  Receive Date: 20180320
  Receipt Date: 20180320
  Transmission Date: 20180509
  Serious: Yes (Other)
  Sender: FDA-Public Use
  Company Number: GB-SUN PHARMACEUTICAL INDUSTRIES LTD-2018RR-167188

PATIENT
  Age: 34 Year
  Sex: Female
  Weight: 82.55 kg

DRUGS (3)
  1. CITALOPRAM [Suspect]
     Active Substance: CITALOPRAM HYDROBROMIDE
     Indication: ANXIETY
     Dosage: ONCE A DAY IN THE MORNING WITH OR JUST AFTER BREAKFAST
     Route: 048
     Dates: start: 20170911
  2. CONTRACEPTIVE [Concomitant]
     Active Substance: UNSPECIFIED INGREDIENT
     Indication: PRODUCT USED FOR UNKNOWN INDICATION
     Dosage: UNK
     Route: 065
     Dates: end: 201707
  3. CITALOPRAM [Suspect]
     Active Substance: CITALOPRAM HYDROBROMIDE
     Dosage: ONCE A DAY IN THE MORNING WITH OR JUST AFTER BREAKFAST
     Route: 048
     Dates: end: 20171214

REACTIONS (21)
  - Anxiety [Unknown]
  - Confusional state [Recovered/Resolved]
  - Dysgeusia [Unknown]
  - Cardiac murmur [Unknown]
  - Parosmia [Unknown]
  - Somnolence [Recovered/Resolved]
  - Urinary incontinence [Recovered/Resolved with Sequelae]
  - Hypoaesthesia [Recovered/Resolved]
  - Vomiting [Recovered/Resolved]
  - Pollakiuria [Recovered/Resolved with Sequelae]
  - Iron deficiency anaemia [Unknown]
  - Hypersomnia [Recovering/Resolving]
  - Withdrawal syndrome [Unknown]
  - Photophobia [Recovered/Resolved with Sequelae]
  - Abnormal dreams [Unknown]
  - Tremor [Recovered/Resolved with Sequelae]
  - Drug ineffective [Unknown]
  - Ehlers-Danlos syndrome [Unknown]
  - Memory impairment [Recovered/Resolved with Sequelae]
  - Salt craving [Unknown]
  - Migraine [Recovered/Resolved]

NARRATIVE: CASE EVENT DATE: 20170911
